FAERS Safety Report 22068563 (Version 2)
Quarter: 2023Q2

REPORT INFORMATION
  Report Type: Report from Study
  Country: US (occurrence: None)
  Receive Date: 20230307
  Receipt Date: 20230413
  Transmission Date: 20230721
  Serious: Yes (Other)
  Sender: FDA-Public Use
  Company Number: 2023A050257

PATIENT
  Age: 14025 Day
  Sex: Female
  Weight: 62.6 kg

DRUGS (1)
  1. LYNPARZA [Suspect]
     Active Substance: OLAPARIB
     Route: 048
     Dates: start: 20230118, end: 20230221

REACTIONS (4)
  - Deafness [Unknown]
  - Visual impairment [Unknown]
  - Vision blurred [Unknown]
  - Headache [Unknown]
